FAERS Safety Report 17101996 (Version 2)
Quarter: 2020Q2

REPORT INFORMATION
  Report Type: Spontaneous
  Country: US (occurrence: US)
  Receive Date: 20191202
  Receipt Date: 20200430
  Transmission Date: 20200713
  Serious: Yes (Disabling, Other)
  Sender: FDA-Public Use
  Company Number: US-009507513-1804USA006690

PATIENT
  Sex: Female
  Weight: 71.2 kg

DRUGS (17)
  1. VITAMINS (UNSPECIFIED) [Concomitant]
     Active Substance: VITAMINS
     Dosage: 1 TALET, EVERY DAY WITH FOOD
     Route: 048
     Dates: start: 20141209
  2. PHILLIPS COLON HEALTH PROBIOTIC [Concomitant]
     Active Substance: PROBIOTICS NOS
     Dosage: STRENGTH: 1.5 BILLION CELL; TAKE DAILY
     Dates: start: 20141209
  3. ZOSTAVAX [Suspect]
     Active Substance: VARICELLA-ZOSTER VIRUS STRAIN OKA/MERCK LIVE ANTIGEN
     Indication: ROUTINE HEALTH MAINTENANCE
     Route: 065
     Dates: start: 20160404, end: 20160406
  4. ZOSTAVAX [Suspect]
     Active Substance: VARICELLA-ZOSTER VIRUS STRAIN OKA/MERCK LIVE ANTIGEN
     Indication: PROPHYLAXIS
  5. CALCIUM D3 [Concomitant]
     Active Substance: CALCIUM\CHOLECALCIFEROL
     Dosage: STRENGTH: 600 MG CALCIUM, 200 UNIT D3; 1 CAPSULE, DAILY
     Route: 048
     Dates: start: 20141209
  6. ESCITALOPRAM [Concomitant]
     Active Substance: ESCITALOPRAM OXALATE
     Dosage: 1.5 TABLET EVERY DAY
     Route: 048
     Dates: start: 20160301
  7. ALPRAZOLAM. [Concomitant]
     Active Substance: ALPRAZOLAM
     Indication: INSOMNIA
     Dosage: 1 MG TAB NIGHTLY
     Dates: start: 2007
  8. ENALAPRIL MALEATE. [Concomitant]
     Active Substance: ENALAPRIL MALEATE
     Dosage: 10 MILLIGRAM, DAILY
     Route: 048
     Dates: start: 2001, end: 2018
  9. LOVASTATIN. [Concomitant]
     Active Substance: LOVASTATIN
     Dosage: 1 TABLET, EVERY DAY WITH THE EVENING MEAL
     Route: 048
     Dates: start: 20160329
  10. STERILE DILUENT (WATER) [Suspect]
     Active Substance: WATER
     Indication: PROPHYLAXIS
     Dosage: UNK
     Dates: start: 20160404, end: 20160404
  11. PROPRANOLOL HYDROCHLORIDE. [Concomitant]
     Active Substance: PROPRANOLOL HYDROCHLORIDE
     Indication: HYPERTENSION
     Dosage: 1 CAPSULE, DAILY
     Route: 048
     Dates: start: 2001
  12. ZYRTEC [Concomitant]
     Active Substance: CETIRIZINE HYDROCHLORIDE
     Dosage: 1 TABLET EVERY DAY
     Route: 048
     Dates: start: 20141209
  13. ASPIRIN. [Concomitant]
     Active Substance: ASPIRIN
     Dosage: 1 TABLET, EVERY DAY
     Route: 048
     Dates: start: 20141209
  14. ESTRADIOL. [Concomitant]
     Active Substance: ESTRADIOL
     Indication: HORMONE REPLACEMENT THERAPY
     Dosage: 1 TABLET DAILY ON DAYS 1-21
     Route: 048
     Dates: start: 2007
  15. ENALAPRIL MALEATE. [Concomitant]
     Active Substance: ENALAPRIL MALEATE
     Indication: HYPERTENSION
     Dosage: 1 TABLET, 2 TIMES EVERY EVENING
     Route: 048
     Dates: start: 20160301
  16. XANAX [Concomitant]
     Active Substance: ALPRAZOLAM
     Dosage: 1 TABLET, 2 TIMES EVERY DAY AS NEEDED
     Route: 048
     Dates: start: 20160301
  17. LEXAPRO [Concomitant]
     Active Substance: ESCITALOPRAM OXALATE
     Indication: ANXIETY
     Dosage: 20 MG TAB, DAILY
     Route: 048
     Dates: start: 2000

REACTIONS (22)
  - Atrial fibrillation [Unknown]
  - Facial paralysis [Not Recovered/Not Resolved]
  - Abdominal pain [Unknown]
  - Corneal abrasion [Unknown]
  - Cerebral atrophy [Unknown]
  - Blindness [Unknown]
  - Amnesia [Unknown]
  - Rhinitis allergic [Recovered/Resolved]
  - Fall [Unknown]
  - Herpes zoster [Unknown]
  - Deafness neurosensory [Unknown]
  - Vertigo positional [Unknown]
  - Herpes zoster oticus [Not Recovered/Not Resolved]
  - Cerebral small vessel ischaemic disease [Unknown]
  - Joint injury [Unknown]
  - Bradycardia [Unknown]
  - Post herpetic neuralgia [Unknown]
  - Bursitis [Unknown]
  - Abdominal pain upper [Unknown]
  - Influenza [Unknown]
  - Musculoskeletal pain [Unknown]
  - Rash vesicular [Unknown]

NARRATIVE: CASE EVENT DATE: 201604
